FAERS Safety Report 6819603-X (Version None)
Quarter: 2010Q3

REPORT INFORMATION
  Report Type: 
  Country: None (occurrence: None)
  Receive Date: 20100701
  Receipt Date: 20091204
  Transmission Date: 20110219
  Serious: No
  Sender: FDA-Public Use
  Company Number: US-TEVA-217459USA

PATIENT
  Sex: Male
  Weight: 79.45 kg

DRUGS (3)
  1. AZILECT [Suspect]
     Indication: PARKINSON'S DISEASE
     Route: 048
  2. STALEVO 100 [Concomitant]
  3. PAROXETINE HCL [Concomitant]

REACTIONS (3)
  - DYSSTASIA [None]
  - HYPOTENSION [None]
  - WEIGHT DECREASED [None]
